FAERS Safety Report 8406920-5 (Version None)
Quarter: 2012Q2

REPORT INFORMATION
  Report Type: 
  Country: None (occurrence: None)
  Receive Date: 20120604
  Receipt Date: 20120530
  Transmission Date: 20120825
  Serious: Yes (Other)
  Sender: FDA-Public Use
  Company Number: US-JNJFOC-20120509133

PATIENT
  Sex: Female
  Weight: 86.18 kg

DRUGS (2)
  1. VISINE EYE DROPS [Suspect]
     Indication: DRY EYE
     Dosage: 1-2 DROPS IN EACH EYE
     Route: 047
     Dates: start: 20120401, end: 20120413
  2. UNKNOWN MEDICATION [Concomitant]
     Route: 065

REACTIONS (1)
  - HOLMES-ADIE PUPIL [None]
